FAERS Safety Report 6510663-2 (Version None)
Quarter: 2009Q4

REPORT INFORMATION
  Report Type: 
  Country: None (occurrence: None)
  Receive Date: 20091222
  Receipt Date: 20091014
  Transmission Date: 20100525
  Serious: No
  Sender: FDA-Public Use
  Company Number: US-ASTRAZENECA-2009SE20136

PATIENT
  Age: 56 Year
  Sex: Female
  Weight: 82.6 kg

DRUGS (2)
  1. CRESTOR [Suspect]
     Route: 048
     Dates: start: 20090901
  2. IC GABAPENTIN [Concomitant]

REACTIONS (1)
  - BACK PAIN [None]
